FAERS Safety Report 25875892 (Version 1)
Quarter: 2025Q4

REPORT INFORMATION
  Report Type: Spontaneous
  Country: CN (occurrence: CN)
  Receive Date: 20251003
  Receipt Date: 20251003
  Transmission Date: 20260118
  Serious: Yes (Hospitalization, Other)
  Sender: BAXTER
  Company Number: None

PATIENT
  Age: 10 Year
  Sex: Female
  Weight: 36.3 kg

DRUGS (10)
  1. CYCLOPHOSPHAMIDE [Suspect]
     Active Substance: CYCLOPHOSPHAMIDE
     Indication: Acute lymphocytic leukaemia
     Dosage: 0.35 G, QD IVGTT
     Route: 041
     Dates: start: 20250819, end: 20250820
  2. SULFAMETHOXAZOLE [Suspect]
     Active Substance: SULFAMETHOXAZOLE
     Indication: Anti-infective therapy
     Dosage: (0.4G/80MG) 1.5 TABLET, BID
     Route: 048
     Dates: start: 20250821, end: 20250827
  3. CYTARABINE [Suspect]
     Active Substance: CYTARABINE
     Indication: Acute lymphocytic leukaemia
     Dosage: 35 MG, QD
     Route: 037
     Dates: start: 20250819, end: 20250819
  4. CYTARABINE [Suspect]
     Active Substance: CYTARABINE
     Dosage: 350 MG, QD IVGTT
     Route: 041
     Dates: start: 20250819, end: 20250820
  5. METHOTREXATE [Suspect]
     Active Substance: METHOTREXATE
     Indication: Acute lymphocytic leukaemia
     Dosage: 12.5 MG, QD (ONCE)
     Route: 037
     Dates: start: 20250819, end: 20250819
  6. METHOTREXATE [Suspect]
     Active Substance: METHOTREXATE
     Indication: Acute lymphocytic leukaemia
     Dosage: 12.5 MG, 1X A WEEK
     Route: 048
     Dates: start: 20250821, end: 20250903
  7. SODIUM CHLORIDE [Suspect]
     Active Substance: SODIUM CHLORIDE
     Indication: Medication dilution
     Dosage: 20 ML, QD
     Route: 042
     Dates: start: 20250819, end: 20250820
  8. SODIUM CHLORIDE [Suspect]
     Active Substance: SODIUM CHLORIDE
     Indication: Medication dilution
     Dosage: 250 ML, QD
     Route: 041
     Dates: start: 20250819, end: 20250820
  9. SODIUM CHLORIDE [Suspect]
     Active Substance: SODIUM CHLORIDE
     Dosage: 100 ML, QD
     Route: 041
     Dates: start: 20250819, end: 20250820
  10. VINDESINE SULFATE [Suspect]
     Active Substance: VINDESINE SULFATE
     Indication: Acute lymphocytic leukaemia
     Dosage: 3.4 MG, QD
     Route: 042
     Dates: start: 20250819, end: 20250820

REACTIONS (2)
  - Ecchymosis [Recovering/Resolving]
  - Hepatic function abnormal [Recovering/Resolving]

NARRATIVE: CASE EVENT DATE: 20250827
